FAERS Safety Report 18181606 (Version 1)
Quarter: 2020Q3

REPORT INFORMATION
  Report Type: Spontaneous
  Country: ES (occurrence: ES)
  Receive Date: 20200821
  Receipt Date: 20200821
  Transmission Date: 20201103
  Serious: Yes (Other)
  Sender: FDA-Public Use
  Company Number: ES-CADILA HEALTHCARE LIMITED-ES-ZYDUS-028249

PATIENT

DRUGS (4)
  1. DULAGLUTIDE. [Suspect]
     Active Substance: DULAGLUTIDE
     Indication: PRODUCT USED FOR UNKNOWN INDICATION
     Dosage: 1.5 MILLIGRAM,(INTERVAL :1 WEEKS)
     Route: 059
     Dates: start: 20170330
  2. METFORMIN [Suspect]
     Active Substance: METFORMIN HYDROCHLORIDE
     Indication: DIABETES MELLITUS
     Dosage: 850 MILLIGRAM,(INTERVAL :12 HOURS)
     Route: 048
     Dates: start: 20170330
  3. SIMVASTATIN. [Suspect]
     Active Substance: SIMVASTATIN
     Indication: PRODUCT USED FOR UNKNOWN INDICATION
     Dosage: 20 MILLIGRAM,0?0?1,(INTERVAL :24 HOURS)
     Route: 048
     Dates: start: 20170330
  4. ADIRO [Concomitant]
     Active Substance: ASPIRIN
     Dosage: 100 MILLIGRAM,0?1?0,(INTERVAL :24 HOURS)
     Route: 048
     Dates: start: 20170330

REACTIONS (2)
  - Lipase increased [Not Recovered/Not Resolved]
  - Hyperamylasaemia [Unknown]

NARRATIVE: CASE EVENT DATE: 20170905
